FAERS Safety Report 4321688-X (Version None)
Quarter: 2004Q1

REPORT INFORMATION
  Report Type: 
  Country: None (occurrence: None)
  Receive Date: 20040322
  Receipt Date: 20030924
  Transmission Date: 20041129
  Serious: No
  Sender: FDA-Public Use
  Company Number: US-BRISTOL-MYERS SQUIBB COMPANY-12422069

PATIENT
  Age: 23 Year
  Sex: Female
  Weight: 61 kg

DRUGS (1)
  1. VAGISTAT-1 [Suspect]
     Indication: FUNGAL INFECTION
     Route: 067
     Dates: start: 20030923, end: 20030923

REACTIONS (1)
  - VAGINAL MYCOSIS [None]
